FAERS Safety Report 5536432-8 (Version None)
Quarter: 2007Q4

REPORT INFORMATION
  Report Type: 
  Country: None (occurrence: None)
  Receive Date: 20071206
  Receipt Date: 20070126
  Transmission Date: 20080405
  Serious: Yes (Hospitalization)
  Sender: FDA-Public Use
  Company Number: US-AMGEN-US204944

PATIENT
  Sex: Female
  Weight: 68.1 kg

DRUGS (3)
  1. ENBREL [Suspect]
     Indication: RHEUMATOID ARTHRITIS
     Route: 058
     Dates: start: 20010101, end: 20060530
  2. METHOTREXATE [Concomitant]
     Dates: end: 20060530
  3. SYNTHROID [Concomitant]
     Dates: start: 20060117

REACTIONS (6)
  - DIVERTICULITIS [None]
  - DYSPNOEA [None]
  - FEELING HOT [None]
  - INJECTION SITE PAIN [None]
  - INTESTINAL PERFORATION [None]
  - POST PROCEDURAL INFECTION [None]
